FAERS Safety Report 5644146-9 (Version None)
Quarter: 2008Q1

REPORT INFORMATION
  Report Type: 
  Country: None (occurrence: None)
  Receive Date: 20080227
  Receipt Date: 20080220
  Transmission Date: 20080703
  Serious: Yes (Death, Hospitalization)
  Sender: FDA-Public Use
  Company Number: 163-21880-08020436

PATIENT
  Age: 61 Year
  Sex: Male

DRUGS (2)
  1. REVLIMID [Suspect]
     Indication: CHRONIC MYELOID LEUKAEMIA
     Dosage: 25 MG,1 IN 1 D,ORAL;3 DOSES,WITHIN 24 HOURS, ORAL
     Route: 048
     Dates: start: 20080206, end: 20080207
  2. REVLIMID [Suspect]
     Indication: CHRONIC MYELOID LEUKAEMIA
     Dosage: 25 MG,1 IN 1 D,ORAL;3 DOSES,WITHIN 24 HOURS, ORAL
     Route: 048
     Dates: start: 20080128

REACTIONS (3)
  - ORGAN FAILURE [None]
  - PULMONARY OEDEMA [None]
  - SEPSIS [None]
